FAERS Safety Report 8180263-X (Version None)
Quarter: 2012Q1

REPORT INFORMATION
  Report Type: 
  Country: None (occurrence: None)
  Receive Date: 20120302
  Receipt Date: 20110719
  Transmission Date: 20120608
  Serious: No
  Sender: FDA-Public Use
  Company Number: US-GLAXOSMITHKLINE-A0937333A

PATIENT
  Age: 74 Year
  Sex: Female

DRUGS (21)
  1. CLOBETASOL PROPIONATE [Suspect]
     Indication: PSORIASIS
     Dosage: 1APP TWICE PER DAY
     Route: 061
     Dates: start: 20110712, end: 20110717
  2. NITROGLYCERIN [Concomitant]
  3. WELCHOL [Concomitant]
  4. VITAMIN B COMPLEX CAP [Concomitant]
  5. OXAZEPAM [Concomitant]
  6. LISINOPRIL [Concomitant]
  7. LEVOTHYROXINE SODIUM [Concomitant]
  8. ASPIRIN [Concomitant]
  9. RESTASIS [Concomitant]
  10. FOLIC ACID [Concomitant]
  11. VITAMIN D [Concomitant]
  12. TRIMETHOPRIM [Concomitant]
  13. VICODIN [Concomitant]
  14. ALPHAGAN [Concomitant]
  15. POLYETHYLENE GLYCOL [Concomitant]
  16. PRAVASTATIN [Concomitant]
  17. PLAVIX [Concomitant]
  18. AMOXICILLIN [Concomitant]
  19. METOPROLOL SUCCINATE EXTENDED RELEASE [Concomitant]
  20. FISH OIL [Concomitant]
  21. PROMETHAZINE [Concomitant]

REACTIONS (4)
  - DIZZINESS [None]
  - PALPITATIONS [None]
  - NAUSEA [None]
  - HEART RATE IRREGULAR [None]
